FAERS Safety Report 8231016-5 (Version None)
Quarter: 2012Q1

REPORT INFORMATION
  Report Type: 
  Country: None (occurrence: None)
  Receive Date: 20120320
  Receipt Date: 20120309
  Transmission Date: 20120608
  Serious: Yes (Death, Hospitalization, Disabling, Other)
  Sender: FDA-Public Use
  Company Number: 2012P1009345

PATIENT
  Age: 54 Year
  Sex: Male

DRUGS (5)
  1. CLINDAMYCIN [Suspect]
     Indication: CEREBRAL TOXOPLASMOSIS
  2. DAPSONE [Suspect]
     Indication: ANTIFUNGAL PROPHYLAXIS
  3. DEXAMETHASONE [Suspect]
     Indication: BRAIN OEDEMA
  4. INSULIN [Concomitant]
  5. DARAPRIM [Suspect]
     Indication: CEREBRAL TOXOPLASMOSIS

REACTIONS (13)
  - ZYGOMYCOSIS [None]
  - SINUSITIS FUNGAL [None]
  - BLINDNESS UNILATERAL [None]
  - OPHTHALMOPLEGIA [None]
  - EXOPHTHALMOS [None]
  - TOXICITY TO VARIOUS AGENTS [None]
  - BONE MARROW FAILURE [None]
  - PANCYTOPENIA [None]
  - MACULOPATHY [None]
  - MENTAL IMPAIRMENT [None]
  - EYELID PTOSIS [None]
  - HAEMODYNAMIC INSTABILITY [None]
  - RESPIRATORY DISORDER [None]
